FAERS Safety Report 17051233 (Version 2)
Quarter: 2020Q3

REPORT INFORMATION
  Report Type: Report from Study
  Country: KR (occurrence: KR)
  Receive Date: 20191120
  Receipt Date: 20191127
  Transmission Date: 20201105
  Serious: Yes (Other)
  Sender: FDA-Public Use
  Company Number: KR-ACCORD-161335

PATIENT
  Age: 28 Year
  Sex: Female

DRUGS (3)
  1. TOPIRAMATE. [Suspect]
     Active Substance: TOPIRAMATE
     Indication: WEIGHT DECREASED
     Route: 048
  2. AZOSEMIDE [Suspect]
     Active Substance: AZOSEMIDE
     Indication: WEIGHT DECREASED
     Route: 048
  3. EPHEDRINE. [Suspect]
     Active Substance: EPHEDRINE
     Indication: WEIGHT DECREASED
     Route: 048

REACTIONS (3)
  - Choroidal effusion [Recovered/Resolved]
  - Pseudomyopia [Recovered/Resolved]
  - Angle closure glaucoma [Recovered/Resolved]
